FAERS Safety Report 8954268 (Version 1)
Quarter: 2012Q4

REPORT INFORMATION
  Report Type: 
  Country: BR (occurrence: BR)
  Receive Date: 20121207
  Receipt Date: 20121207
  Transmission Date: 20130627
  Serious: Yes (Other)
  Sender: FDA-Public Use
  Company Number: PHHY2012BR110796

PATIENT
  Sex: Female

DRUGS (6)
  1. GILENYA [Suspect]
     Indication: MULTIPLE SCLEROSIS
     Dosage: 0.5 mg, UNK
     Route: 048
     Dates: start: 201208
  2. BACLOFEN [Concomitant]
     Dosage: UNK
  3. DANTALIN [Concomitant]
     Dosage: UNK
  4. DOMPERIDONE [Concomitant]
     Indication: GASTROINTESTINAL DISORDER
     Dosage: UNK UKN, UNK
  5. MOVILAX [Concomitant]
  6. SUPPOSITOIRES [Concomitant]

REACTIONS (17)
  - Cerebrovascular accident [Recovered/Resolved]
  - Monoplegia [Recovered/Resolved]
  - Limb discomfort [Recovered/Resolved]
  - Oral discomfort [Recovered/Resolved]
  - Gait disturbance [Recovered/Resolved]
  - Posture abnormal [Recovered/Resolved]
  - Gastrointestinal disorder [Recovered/Resolved]
  - Constipation [Recovered/Resolved]
  - Abdominal distension [Recovered/Resolved]
  - Discomfort [Recovered/Resolved]
  - Pain [Recovered/Resolved]
  - Anxiety [Recovered/Resolved]
  - Somnolence [Recovered/Resolved]
  - Feeling abnormal [Recovered/Resolved]
  - Moaning [Recovered/Resolved]
  - Muscle mass [Unknown]
  - Musculoskeletal pain [Unknown]
